FAERS Safety Report 6946326-9 (Version None)
Quarter: 2010Q3

REPORT INFORMATION
  Report Type: 
  Country: None (occurrence: None)
  Receive Date: 20100824
  Receipt Date: 20100812
  Transmission Date: 20110219
  Serious: Yes (Death)
  Sender: FDA-Public Use
  Company Number: 2010AC000490

PATIENT
  Sex: Male

DRUGS (1)
  1. DIGOXIN [Suspect]
     Dosage: QD, PO
     Route: 048
     Dates: start: 20080102, end: 20080327

REACTIONS (3)
  - ECONOMIC PROBLEM [None]
  - ILL-DEFINED DISORDER [None]
  - MULTIPLE INJURIES [None]
